FAERS Safety Report 11929727 (Version 1)
Quarter: 2016Q1

REPORT INFORMATION
  Report Type: Spontaneous
  Country: US (occurrence: None)
  Receive Date: 20160119
  Receipt Date: 20160119
  Transmission Date: 20160526
  Serious: Yes (Life-Threatening, Hospitalization, Disabling, Other)
  Sender: FDA-Public Use
  Company Number: None

PATIENT
  Age: 57 Year
  Sex: Male
  Weight: 90.72 kg

DRUGS (2)
  1. ADVIL [Concomitant]
     Active Substance: IBUPROFEN
  2. MAGNEVIST [Suspect]
     Active Substance: GADOPENTETATE DIMEGLUMINE
     Indication: NUCLEAR MAGNETIC RESONANCE IMAGING
     Dosage: 20ML ONE TIME INJECTION, ONE TIME ONLY, INTO A VEIN
     Dates: start: 20140909, end: 20140909

REACTIONS (29)
  - Toxicity to various agents [None]
  - Malaise [None]
  - Blood pressure fluctuation [None]
  - Arthropathy [None]
  - Impaired work ability [None]
  - Blood pressure decreased [None]
  - Thinking abnormal [None]
  - Feeling abnormal [None]
  - Paraesthesia [None]
  - Drug screen positive [None]
  - Mental disorder [None]
  - General physical health deterioration [None]
  - Rash [None]
  - Impaired self-care [None]
  - Cardiac disorder [None]
  - Gait disturbance [None]
  - Activities of daily living impaired [None]
  - Rash erythematous [None]
  - Dizziness [None]
  - Confusional state [None]
  - Nausea [None]
  - Asthenia [None]
  - Skin burning sensation [None]
  - Burning sensation [None]
  - Fatigue [None]
  - Tilt table test positive [None]
  - Disturbance in attention [None]
  - Palpitations [None]
  - Hypoaesthesia [None]

NARRATIVE: CASE EVENT DATE: 20140909
